FAERS Safety Report 5827400-7 (Version None)
Quarter: 2008Q3

REPORT INFORMATION
  Report Type: 
  Country: None (occurrence: None)
  Receive Date: 20080730
  Receipt Date: 20080117
  Transmission Date: 20090109
  Serious: No
  Sender: FDA-Public Use
  Company Number: US-BAUSCH-2008BL000214

PATIENT
  Age: 57 Year
  Sex: Female

DRUGS (1)
  1. TROPICAMIDE [Suspect]
     Indication: SLIT-LAMP EXAMINATION
     Route: 047
     Dates: start: 20080107, end: 20080107

REACTIONS (20)
  - ABDOMINAL PAIN UPPER [None]
  - CONFUSIONAL STATE [None]
  - DIZZINESS [None]
  - DRUG EFFECT PROLONGED [None]
  - DRY MOUTH [None]
  - EYE IRRITATION [None]
  - EYE PAIN [None]
  - GAIT DISTURBANCE [None]
  - HEADACHE [None]
  - HYPERSENSITIVITY [None]
  - INFLUENZA [None]
  - MYDRIASIS [None]
  - NAUSEA [None]
  - OCULAR HYPERAEMIA [None]
  - OROPHARYNGEAL PAIN [None]
  - OROPHARYNGEAL SWELLING [None]
  - PALPITATIONS [None]
  - PRURITUS GENERALISED [None]
  - VISION BLURRED [None]
  - VOMITING [None]
